FAERS Safety Report 24669374 (Version 1)
Quarter: 2024Q4

REPORT INFORMATION
  Report Type: Spontaneous
  Country: US (occurrence: US)
  Receive Date: 20241127
  Receipt Date: 20241127
  Transmission Date: 20250115
  Serious: No
  Sender: CELLTRION
  Company Number: US-CELLTRION INC.-2024US023248

PATIENT

DRUGS (5)
  1. YUFLYMA [Suspect]
     Active Substance: ADALIMUMAB-AATY
     Indication: Rheumatoid arthritis
     Dosage: 40 MG INJECTED SUBCUTANEOUSLY EVERY OTHER WEEK
     Route: 058
     Dates: start: 20240822
  2. YUFLYMA [Suspect]
     Active Substance: ADALIMUMAB-AATY
     Dosage: 40 MG INJECTED SUBCUTANEOUSLY EVERY OTHER WEEK
     Route: 058
     Dates: start: 20240905
  3. YUFLYMA [Suspect]
     Active Substance: ADALIMUMAB-AATY
     Dosage: 40 MG
     Route: 058
     Dates: start: 20240921
  4. YUFLYMA [Suspect]
     Active Substance: ADALIMUMAB-AATY
     Dosage: 40 MG
     Route: 058
     Dates: start: 20241006
  5. YUFLYMA [Suspect]
     Active Substance: ADALIMUMAB-AATY
     Dosage: 40 MG, Q2WEEKS (INJECT (40MG) INTO SKIN EVERY 14 DAYS)
     Dates: start: 20240816, end: 20241020

REACTIONS (6)
  - Thought blocking [Recovered/Resolved]
  - Headache [Recovered/Resolved]
  - Injection site bruising [Recovered/Resolved]
  - Product distribution issue [Not Recovered/Not Resolved]
  - Therapy interrupted [Not Recovered/Not Resolved]
  - Intentional dose omission [Unknown]

NARRATIVE: CASE EVENT DATE: 20240816
